FAERS Safety Report 9709064 (Version 1)
Quarter: 2013Q4

REPORT INFORMATION
  Report Type: Spontaneous
  Country: FR (occurrence: FR)
  Receive Date: 20131125
  Receipt Date: 20131125
  Transmission Date: 20140711
  Serious: Yes (Other)
  Sender: FDA-Public Use
  Company Number: PHHY2013FR133563

PATIENT
  Sex: 0

DRUGS (2)
  1. IMATINIB [Suspect]
     Indication: CHORDOMA
     Dosage: 400 MG, PER DAY
     Dates: start: 200902, end: 201302
  2. CYCLOPHOSPHAMIDE [Suspect]
     Indication: CHORDOMA

REACTIONS (5)
  - Acute myeloid leukaemia [Unknown]
  - Second primary malignancy [Unknown]
  - Paralysis [Recovering/Resolving]
  - Pain [Recovering/Resolving]
  - Drug ineffective [Unknown]
